FAERS Safety Report 9325529 (Version 1)
Quarter: 2013Q2

REPORT INFORMATION
  Report Type: Spontaneous
  Country: US (occurrence: None)
  Receive Date: 20130531
  Receipt Date: 20130531
  Transmission Date: 20140414
  Serious: Yes (Hospitalization)
  Sender: FDA-Public Use
  Company Number: None

PATIENT
  Sex: Female

DRUGS (2)
  1. HUMIRA PEN 40MG ABBOTT [Suspect]
     Indication: CROHN^S DISEASE
     Dosage: 40MG QOW SQ
     Route: 058
     Dates: start: 2006
  2. COPAXONE 20MG TEVA [Suspect]
     Indication: MULTIPLE SCLEROSIS
     Dosage: 20MG QD SQ
     Route: 058
     Dates: start: 201112

REACTIONS (1)
  - Deep vein thrombosis [None]
